FAERS Safety Report 9886037 (Version 1)
Quarter: 2013Q4

REPORT INFORMATION
  Report Type: Spontaneous
  Country: US (occurrence: None)
  Receive Date: 20131223
  Receipt Date: 20131223
  Transmission Date: 20140711
  Serious: Yes (Other)
  Sender: FDA-Public Use
  Company Number: 217367LEO

PATIENT
  Age: 75 Year
  Sex: Female

DRUGS (3)
  1. PICATO GEL [Suspect]
     Indication: ACTINIC KERATOSIS
     Dosage: 1 IN 1 D, TOPICAL TO FACE
     Route: 061
     Dates: start: 20120425, end: 20120428
  2. PAVACHOL (PRAVASTATIN SODIUM) (10 MG, TABLET) [Concomitant]
  3. CARDIZEM (DILTIAZEM) (30 MG, TABLET) [Concomitant]

REACTIONS (1)
  - Application site vesicles [None]
